FAERS Safety Report 7931144-5 (Version None)
Quarter: 2011Q4

REPORT INFORMATION
  Report Type: 
  Country: None (occurrence: None)
  Receive Date: 20111121
  Receipt Date: 20111025
  Transmission Date: 20120403
  Serious: Yes (Hospitalization)
  Sender: FDA-Public Use
  Company Number: FR-MERCK-1110USA04448

PATIENT
  Age: 47 Year
  Sex: Female
  Weight: 50 kg

DRUGS (9)
  1. LYRICA [Suspect]
     Indication: SEPTIC SHOCK
     Route: 048
     Dates: start: 20110601, end: 20110610
  2. IMURAN [Suspect]
     Indication: VASCULITIS
     Route: 048
     Dates: start: 20110329, end: 20110604
  3. IMURAN [Suspect]
     Route: 048
     Dates: start: 20110611
  4. VALACYCLOVIR HYDROCHLORIDE [Concomitant]
     Route: 065
  5. BACTRIM [Concomitant]
     Route: 065
  6. RABEPRAZOLE SODIUM [Concomitant]
     Route: 065
  7. PREDNISONE TAB [Concomitant]
     Route: 065
  8. CILASTATIN SODIUM AND IMIPENEM [Concomitant]
     Route: 065
     Dates: start: 20110601, end: 20110610
  9. CANCIDAS [Suspect]
     Indication: SEPTIC SHOCK
     Route: 065
     Dates: start: 20110601, end: 20110610

REACTIONS (1)
  - PANCREATITIS ACUTE [None]
